FAERS Safety Report 16989293 (Version 1)
Quarter: 2019Q4

REPORT INFORMATION
  Report Type: Spontaneous
  Country: US (occurrence: US)
  Receive Date: 20191104
  Receipt Date: 20191104
  Transmission Date: 20200122
  Serious: No
  Sender: FDA-Public Use
  Company Number: US-PFIZER INC-2019122866

PATIENT
  Age: 48 Year
  Sex: Female

DRUGS (1)
  1. LYRICA [Suspect]
     Active Substance: PREGABALIN
     Indication: FIBROMYALGIA
     Dosage: 300 MG, 2X/DAY
     Route: 048
     Dates: start: 20181220

REACTIONS (6)
  - Off label use [Unknown]
  - Poor quality sleep [Unknown]
  - Thinking abnormal [Unknown]
  - Gait disturbance [Unknown]
  - Dysgraphia [Unknown]
  - Migraine [Unknown]

NARRATIVE: CASE EVENT DATE: 20181220
